FAERS Safety Report 8017367-8 (Version None)
Quarter: 2012Q1

REPORT INFORMATION
  Report Type: 
  Country: None (occurrence: None)
  Receive Date: 20120102
  Receipt Date: 20111220
  Transmission Date: 20120608
  Serious: Yes (Hospitalization, Disabling, Other)
  Sender: FDA-Public Use
  Company Number: IT-ROCHE-729635

PATIENT
  Sex: Female
  Weight: 47 kg

DRUGS (41)
  1. MIRCERA [Suspect]
     Dosage: LAST DOSE PRIOR TO SAE:15 NOVEMBER 2010, DOSAGE FORM: PFS
     Route: 042
  2. CLOPIDOGREL [Concomitant]
  3. TELMISARTAN [Concomitant]
  4. AMLODIPINE [Concomitant]
  5. ACETAMINOPHEN [Concomitant]
  6. IMATINIB MESYLATE [Concomitant]
     Dates: start: 20110113
  7. MIRCERA [Suspect]
     Dosage: LAST DOSE PRIOR TO SAE: 14 JANUARY 2011.
     Route: 042
  8. ALLOPURINOL [Concomitant]
  9. RANITIDINE [Concomitant]
     Dates: start: 20111031
  10. SIMVASTATIN [Concomitant]
     Dosage: 10/20 MG
     Dates: start: 20111116
  11. MIRCERA [Suspect]
     Dosage: LAST DOSE PRIOR TO SAE: 15 AUG 2011
     Route: 042
  12. VERAPAMIL [Concomitant]
  13. SEVELAMER [Concomitant]
  14. RISEDRONIC ACID [Concomitant]
  15. SEVELAMER CARBONATE [Concomitant]
  16. L-CARNITINE [Concomitant]
     Dates: start: 20100906
  17. MIRCERA [Suspect]
     Indication: NEPHROGENIC ANAEMIA
     Dosage: LAST DOSE PRIOR TO SAE: 16 JUNE 2010, DOSAGE FORM: PFS
     Route: 042
  18. DARBEPOETIN ALFA [Suspect]
     Indication: NEPHROGENIC ANAEMIA
     Dosage: NURSE MISTAKE ON 15 DEC 2010, DARBEPOTIN ALFA (BATCH 1016812) WAS ADMINISTERED.
     Route: 065
     Dates: start: 20101215, end: 20101215
  19. LANSOPRAZOLE [Concomitant]
  20. SEVELAMER [Concomitant]
  21. TELMISARTAN [Concomitant]
  22. METOPROLOL [Concomitant]
  23. DIGOXIN [Concomitant]
     Dosage: TDD: 625 GU
     Dates: start: 20100702, end: 20101124
  24. ASPIRIN [Concomitant]
  25. ATORVASTATIN CALCIUM [Concomitant]
  26. FUROSEMIDE [Concomitant]
  27. METOPROLOL [Concomitant]
  28. LANTHANUM CARBONATE [Concomitant]
  29. PREDNISONE [Concomitant]
  30. PARICALCITOL [Concomitant]
     Dosage: REPORTED AS PARACALCITOL
  31. PRAVASTATIN [Concomitant]
  32. ASPIRIN [Concomitant]
     Dates: start: 20091226
  33. VYTORIN [Concomitant]
     Dosage: 10/20 MG DAILY
     Dates: start: 20111116
  34. MIRCERA [Suspect]
     Route: 042
  35. CARVEDILOL [Concomitant]
  36. RISEDRONIC ACID [Concomitant]
  37. IRON GLUCONATE [Concomitant]
  38. SEVELAMER CARBONATE [Concomitant]
  39. TICLOPIDINE HCL [Concomitant]
     Dates: start: 20111031
  40. DALTEPARIN SODIUM [Concomitant]
     Dates: start: 20111003
  41. CILOSTAZOL [Concomitant]
     Dates: start: 20111031

REACTIONS (8)
  - MYOCARDIAL INFARCTION [None]
  - CHRONIC MYELOID LEUKAEMIA [None]
  - ANGINA PECTORIS [None]
  - MYOCARDIAL ISCHAEMIA [None]
  - SPINAL COMPRESSION FRACTURE [None]
  - CEREBRAL ISCHAEMIA [None]
  - DELIRIUM [None]
  - LETHARGY [None]
